FAERS Safety Report 23229311 (Version 2)
Quarter: 2023Q4

REPORT INFORMATION
  Report Type: Spontaneous
  Country: RS (occurrence: None)
  Receive Date: 20231127
  Receipt Date: 20231228
  Transmission Date: 20240109
  Serious: Yes (Hospitalization, Other)
  Sender: FDA-Public Use
  Company Number: RS-ROCHE-3461125

PATIENT
  Age: 7 Year
  Sex: Female
  Weight: 30 kg

DRUGS (4)
  1. ACTEMRA [Suspect]
     Active Substance: TOCILIZUMAB
     Indication: Still^s disease
     Route: 042
     Dates: start: 201910
  2. ACTEMRA [Suspect]
     Active Substance: TOCILIZUMAB
     Indication: Product used for unknown indication
     Route: 058
  3. METHOTREXATE [Suspect]
     Active Substance: METHOTREXATE
     Indication: Product used for unknown indication
     Route: 065
  4. ACYCLOVIR [Concomitant]
     Active Substance: ACYCLOVIR

REACTIONS (11)
  - Varicella [Unknown]
  - Dyspnoea [Unknown]
  - Arthralgia [Unknown]
  - Pneumonia [Unknown]
  - Disease progression [Unknown]
  - Chest pain [Unknown]
  - Restrictive pulmonary disease [Unknown]
  - Abdominal pain [Unknown]
  - Ill-defined disorder [Unknown]
  - Pericarditis [Unknown]
  - Pleurisy [Unknown]

NARRATIVE: CASE EVENT DATE: 20211201
